FAERS Safety Report 4483118-7 (Version None)
Quarter: 2004Q3

REPORT INFORMATION
  Report Type: 
  Country: None (occurrence: None)
  Receive Date: 20040921
  Receipt Date: 20040603
  Transmission Date: 20050211
  Serious: Yes (Hospitalization)
  Sender: FDA-Public Use
  Company Number: 163-20785-04060303

PATIENT
  Age: 68 Year
  Sex: Female
  Weight: 48.1 kg

DRUGS (9)
  1. THALOMID [Suspect]
     Indication: NON-SMALL CELL LUNG CANCER
     Dosage: 400 MG, DAILY, ORAL
     Route: 048
     Dates: start: 20040430, end: 20040609
  2. CARBOPLATIN [Suspect]
     Indication: NON-SMALL CELL LUNG CANCER
     Dosage: 400 MG, CYCLE 1, CYCLE 2, INTRAVENOUS
     Route: 042
     Dates: start: 20040430, end: 20040430
  3. CARBOPLATIN [Suspect]
     Indication: NON-SMALL CELL LUNG CANCER
     Dosage: 400 MG, CYCLE 1, CYCLE 2, INTRAVENOUS
     Route: 042
     Dates: start: 20040521, end: 20040521
  4. PACLITAXEL (PACLITAXEL) (UNKNOWN) [Suspect]
     Indication: NON-SMALL CELL LUNG CANCER
     Dosage: TOTAL DOSE 324 MG, CYCLE 1, CYCLE 2, INTRAVENOUS
     Route: 042
     Dates: start: 20040430, end: 20040430
  5. PACLITAXEL (PACLITAXEL) (UNKNOWN) [Suspect]
     Indication: NON-SMALL CELL LUNG CANCER
     Dosage: TOTAL DOSE 324 MG, CYCLE 1, CYCLE 2, INTRAVENOUS
     Route: 042
     Dates: start: 20040521, end: 20040521
  6. RADIOTHERAPY (UNKNOWN) [Suspect]
     Indication: NON-SMALL CELL LUNG CANCER
     Dosage: TOTAL OF 60 GY AT 2.0 GY PER FRACTION, BEGINNING BETWEEN DAY 43-50 FOR 6 WEEKS, UNKNOWN
  7. BIAXIN [Concomitant]
  8. PREDNISONE [Concomitant]
  9. COMBIVENT (COMBIVENT) (UNKNOWN) [Concomitant]

REACTIONS (7)
  - ABDOMINAL DISTENSION [None]
  - CONSTIPATION [None]
  - DYSPNOEA [None]
  - NAUSEA [None]
  - PAIN [None]
  - THROMBOSIS [None]
  - VOMITING [None]
